FAERS Safety Report 9788039 (Version 2)
Quarter: 2014Q1

REPORT INFORMATION
  Report Type: Spontaneous
  Country: FR (occurrence: FR)
  Receive Date: 20131230
  Receipt Date: 20140203
  Transmission Date: 20141002
  Serious: Yes (Hospitalization)
  Sender: FDA-Public Use
  Company Number: FR-SA-2013SA132868

PATIENT
  Age: 85 Year
  Sex: Female

DRUGS (9)
  1. LASILIX [Suspect]
     Indication: PRODUCT USED FOR UNKNOWN INDICATION
     Route: 048
     Dates: start: 201305, end: 20130516
  2. ALDACTAZINE [Suspect]
     Indication: PRODUCT USED FOR UNKNOWN INDICATION
     Route: 048
     Dates: end: 20130516
  3. LERCANIDIPINE [Concomitant]
  4. PREVISCAN [Concomitant]
     Dosage: STRENGTH: 20 MG
  5. LEVOTHYROX [Concomitant]
  6. SPIRIVA [Concomitant]
  7. ZOLPIDEM [Concomitant]
  8. SERTRALINE [Concomitant]
  9. DIFFU K [Concomitant]

REACTIONS (3)
  - Confusional state [Recovered/Resolved]
  - Hypokalaemia [Recovered/Resolved]
  - Wrong drug administered [Unknown]
